FAERS Safety Report 4449432-6 (Version None)
Quarter: 2004Q3

REPORT INFORMATION
  Report Type: 
  Country: None (occurrence: None)
  Receive Date: 20040913
  Receipt Date: 20040827
  Transmission Date: 20050211
  Serious: Yes (Hospitalization)
  Sender: FDA-Public Use
  Company Number: 2004AP04378

PATIENT
  Age: 76 Year
  Sex: Female

DRUGS (7)
  1. OMEPRAL [Suspect]
     Indication: GASTRITIS
     Dosage: 20 MG DAILY PO
     Route: 048
     Dates: start: 20031218, end: 20040709
  2. OMEPRAL [Suspect]
     Indication: REFLUX OESOPHAGITIS
     Dosage: 20 MG DAILY PO
     Route: 048
     Dates: start: 20031218, end: 20040709
  3. NU LOTAN [Suspect]
     Dosage: 50 MG DAILY PO
     Route: 048
     Dates: start: 20011023, end: 20040709
  4. PRONON [Concomitant]
  5. LENDORM [Concomitant]
  6. CARVEDILOL [Concomitant]
  7. ALOSENN [Concomitant]

REACTIONS (1)
  - RHABDOMYOLYSIS [None]
